FAERS Safety Report 6845849-0 (Version None)
Quarter: 2010Q3

REPORT INFORMATION
  Report Type: 
  Country: None (occurrence: None)
  Receive Date: 20100715
  Receipt Date: 20070829
  Transmission Date: 20110219
  Serious: No
  Sender: FDA-Public Use
  Company Number: US-PFIZER INC-2007072738

PATIENT
  Sex: Male
  Weight: 86.2 kg

DRUGS (8)
  1. CHANTIX [Suspect]
     Indication: SMOKING CESSATION THERAPY
     Dates: start: 20070822
  2. DIGITEK [Concomitant]
  3. WARFARIN SODIUM [Concomitant]
  4. ACETYLSALICYLIC ACID [Concomitant]
  5. LISINOPRIL [Concomitant]
  6. PROBENECID [Concomitant]
  7. CELEBREX [Concomitant]
  8. SYNTHROID [Concomitant]

REACTIONS (4)
  - ABDOMINAL DISTENSION [None]
  - DYSURIA [None]
  - FEELING ABNORMAL [None]
  - NAUSEA [None]
